FAERS Safety Report 4397284-5 (Version None)
Quarter: 2004Q2

REPORT INFORMATION
  Report Type: 
  Country: None (occurrence: None)
  Receive Date: 20040621
  Receipt Date: 20040218
  Transmission Date: 20050107
  Serious: Yes (Death)
  Sender: FDA-Public Use
  Company Number: USA-2004-0013172

PATIENT
  Sex: Female

DRUGS (3)
  1. OXYCONTIN [Suspect]
     Indication: PAIN
     Dosage: ORAL
     Route: 048
  2. KEPPRA [Suspect]
     Indication: FIBROMYALGIA
     Dosage: 500 MG, ORAL
     Route: 048
     Dates: start: 20030522, end: 20030523
  3. XANAX [Suspect]
     Indication: DEPRESSION
     Dosage: 2 MG, ORAL
     Route: 048

REACTIONS (1)
  - MULTIPLE DRUG OVERDOSE [None]
